FAERS Safety Report 6027901-5 (Version None)
Quarter: 2008Q4

REPORT INFORMATION
  Report Type: 
  Country: None (occurrence: None)
  Receive Date: 20081230
  Receipt Date: 20081219
  Transmission Date: 20090506
  Serious: Yes (Hospitalization)
  Sender: FDA-Public Use
  Company Number: GXKR2008DE12052

PATIENT
  Age: 53 Year
  Sex: Female

DRUGS (15)
  1. ZOPICLONE (NGX) (ZOPICLONE) UNKNOWN [Suspect]
     Dosage: 7.5 MG, QD, ORAL
     Route: 048
     Dates: start: 20080126
  2. AKINETON / AUS/ BIPERIDEN HYDROCHLORIDE) [Suspect]
     Dosage: 6 MG, QD
     Dates: start: 20080206
  3. DIAZEPAM [Suspect]
     Dosage: 20 MG, QD
     Dates: start: 20080129, end: 20080326
  4. HALDOL [Suspect]
     Dosage: 10 MG, QD; 15 MG, QD
     Dates: start: 20080128, end: 20080212
  5. HALDOL [Suspect]
     Dosage: 10 MG, QD; 15 MG, QD
     Dates: start: 20080213, end: 20080215
  6. HALDOL [Suspect]
     Dosage: 10 MG, QD; 15 MG, QD
     Dates: start: 20080216, end: 20080222
  7. VALPROIC ACID [Suspect]
     Dosage: 300 MG, QD; 600 MG, QD; 900 MG, QD, 1200 MG, QD; 1500 MG, QD
     Dates: start: 20080214, end: 20080220
  8. VALPROIC ACID [Suspect]
     Dosage: 300 MG, QD; 600 MG, QD; 900 MG, QD, 1200 MG, QD; 1500 MG, QD
     Dates: start: 20080216, end: 20080220
  9. VALPROIC ACID [Suspect]
     Dosage: 300 MG, QD; 600 MG, QD; 900 MG, QD, 1200 MG, QD; 1500 MG, QD
     Dates: start: 20080209, end: 20080222
  10. VALPROIC ACID [Suspect]
     Dosage: 300 MG, QD; 600 MG, QD; 900 MG, QD, 1200 MG, QD; 1500 MG, QD
     Dates: start: 20080221, end: 20080325
  11. VALPROIC ACID [Suspect]
     Dosage: 300 MG, QD; 600 MG, QD; 900 MG, QD, 1200 MG, QD; 1500 MG, QD
     Dates: start: 20080208
  12. RISPERDAL [Suspect]
     Dosage: 1 MG, QD; 2 MG, QD; 6 MG, QD; 8 MG, QD
     Dates: start: 20080211, end: 20080212
  13. RISPERDAL [Suspect]
     Dosage: 1 MG, QD; 2 MG, QD; 6 MG, QD; 8 MG, QD
     Dates: start: 20080213, end: 20080220
  14. RISPERDAL [Suspect]
     Dosage: 1 MG, QD; 2 MG, QD; 6 MG, QD; 8 MG, QD
     Dates: start: 20080221, end: 20080225
  15. RISPERDAL [Suspect]
     Dosage: 1 MG, QD; 2 MG, QD; 6 MG, QD; 8 MG, QD
     Dates: start: 20080226, end: 20080704

REACTIONS (1)
  - PLEUROTHOTONUS [None]
